FAERS Safety Report 26184032 (Version 1)
Quarter: 2025Q4

REPORT INFORMATION
  Report Type: Spontaneous
  Country: US (occurrence: US)
  Receive Date: 20251222
  Receipt Date: 20251222
  Transmission Date: 20260118
  Serious: Yes (Life-Threatening, Other)
  Sender: ASTELLAS
  Company Number: US-ASTELLAS-2025-AER-071029

PATIENT
  Age: 62 Year
  Sex: Female

DRUGS (3)
  1. PROGRAF [Suspect]
     Active Substance: TACROLIMUS
     Indication: Renal transplant
     Route: 065
     Dates: start: 2005, end: 2013
  2. PROGRAF [Suspect]
     Active Substance: TACROLIMUS
     Dosage: ADJUSTED
     Route: 065
     Dates: start: 2013
  3. PREDNISONE [Concomitant]
     Active Substance: PREDNISONE
     Indication: Renal transplant
     Route: 065

REACTIONS (3)
  - Inflammation [Recovering/Resolving]
  - Infection [Recovering/Resolving]
  - Triple negative breast cancer [Recovered/Resolved]

NARRATIVE: CASE EVENT DATE: 20130101
